FAERS Safety Report 4357398-2 (Version None)
Quarter: 2004Q2

REPORT INFORMATION
  Report Type: 
  Country: None (occurrence: None)
  Receive Date: 20040506
  Receipt Date: 20040421
  Transmission Date: 20050107
  Serious: Yes (Other)
  Sender: FDA-Public Use
  Company Number: 2004-00225FE

PATIENT
  Age: 38 Year
  Sex: Male

DRUGS (2)
  1. PENTASA [Suspect]
     Indication: CROHN'S DISEASE
     Dosage: 3000 MG
     Route: 048
     Dates: start: 20011012, end: 20011129
  2. HYPER ALIMENTATION FLUIDS [Concomitant]

REACTIONS (1)
  - INTESTINAL OBSTRUCTION [None]
